FAERS Safety Report 12472683 (Version 1)
Quarter: 2016Q2

REPORT INFORMATION
  Report Type: Spontaneous
  Country: US (occurrence: US)
  Receive Date: 20160616
  Receipt Date: 20160616
  Transmission Date: 20160815
  Serious: Yes (Hospitalization, Other)
  Sender: FDA-Public Use
  Company Number: US-MDT-ADR-2016-01109

PATIENT
  Age: 58 Year
  Sex: Female

DRUGS (2)
  1. FENTANYL. [Suspect]
     Active Substance: FENTANYL
     Dosage: 3.0034MG/DAY
     Route: 037
  2. BACLOFEN. [Suspect]
     Active Substance: BACLOFEN
     Dosage: 60.07MCG/DAY
     Route: 037

REACTIONS (8)
  - Sudden onset of sleep [Unknown]
  - Encephalitis viral [Unknown]
  - Delirium tremens [Unknown]
  - Tremor [Unknown]
  - Malaise [Unknown]
  - Influenza like illness [Unknown]
  - Overdose [Unknown]
  - International normalised ratio increased [Unknown]

NARRATIVE: CASE EVENT DATE: 201605
